FAERS Safety Report 4541637-9 (Version None)
Quarter: 2004Q4

REPORT INFORMATION
  Report Type: 
  Country: None (occurrence: None)
  Receive Date: 20041230
  Receipt Date: 20041007
  Transmission Date: 20050328
  Serious: Yes (Hospitalization)
  Sender: FDA-Public Use
  Company Number: US-ROCHE-390331

PATIENT
  Age: 17 Year
  Sex: Male

DRUGS (11)
  1. DACLIZUMAB [Suspect]
     Route: 065
     Dates: start: 20040929
  2. CELLCEPT [Concomitant]
  3. PROGRAF [Concomitant]
     Dosage: REPORTED AS 12 MG CURRENT.
     Dates: end: 20041015
  4. SINGULAIR [Concomitant]
     Route: 048
  5. NU-IRON [Concomitant]
     Route: 048
  6. SEPTRA [Concomitant]
     Route: 048
  7. NORVASC [Concomitant]
     Route: 048
  8. LINEZOLID [Concomitant]
     Route: 042
  9. TIMENTIN [Concomitant]
     Route: 042
  10. GANCICLOVIR [Concomitant]
     Route: 042
  11. BUMEX [Concomitant]
     Route: 042

REACTIONS (5)
  - DYSPNOEA [None]
  - LARYNGOSPASM [None]
  - PNEUMONIA ASPIRATION [None]
  - POST PROCEDURAL COMPLICATION [None]
  - RESPIRATORY DISTRESS [None]
